FAERS Safety Report 6575733-1 (Version None)
Quarter: 2010Q1

REPORT INFORMATION
  Report Type: 
  Country: None (occurrence: None)
  Receive Date: 20100209
  Receipt Date: 20100201
  Transmission Date: 20100710
  Serious: Yes (Hospitalization, Other)
  Sender: FDA-Public Use
  Company Number: RS-JNJFOC-20090800788

PATIENT
  Age: 38 Year
  Sex: Male
  Weight: 128 kg

DRUGS (3)
  1. RISPOLEPT CONSTA [Suspect]
     Indication: SCHIZOPHRENIA, PARANOID TYPE
     Route: 030
  2. RISPOLEPT CONSTA [Suspect]
     Route: 030
  3. PRESOLOL [Concomitant]
     Indication: HYPERTENSION
     Route: 065

REACTIONS (2)
  - MYOCARDIAL INFARCTION [None]
  - WEIGHT INCREASED [None]
